FAERS Safety Report 8544793-0 (Version None)
Quarter: 2012Q3

REPORT INFORMATION
  Report Type: 
  Country: None (occurrence: None)
  Receive Date: 20120727
  Receipt Date: 20120726
  Transmission Date: 20120928
  Serious: Yes (Death)
  Sender: FDA-Public Use
  Company Number: TN-BAYER-2012-075517

PATIENT
  Age: 71 Year
  Sex: Male
  Weight: 90 kg

DRUGS (1)
  1. ULTRAVIST 150 [Suspect]
     Indication: ABDOMINAL X-RAY
     Dosage: 90 ML, ONCE
     Dates: start: 20120711, end: 20120711

REACTIONS (3)
  - HEADACHE [None]
  - NAUSEA [None]
  - FEELING HOT [None]
